FAERS Safety Report 18272612 (Version 1)
Quarter: 2020Q3

REPORT INFORMATION
  Report Type: Spontaneous
  Country: US (occurrence: US)
  Receive Date: 20200916
  Receipt Date: 20200916
  Transmission Date: 20201103
  Serious: No
  Sender: FDA-Public Use
  Company Number: US-TORRENT-00009146

PATIENT
  Age: 70 Year
  Sex: Female
  Weight: 60 kg

DRUGS (4)
  1. LOSARTAN. [Concomitant]
     Active Substance: LOSARTAN
     Indication: HYPERTENSION
  2. ZOLPIDEM TARTRATE. [Suspect]
     Active Substance: ZOLPIDEM TARTRATE
     Indication: SLEEP DISORDER
     Dosage: ONE AND HALF TABLET EVERY NIGHT
     Dates: start: 201903, end: 2019
  3. TYLENOL [Concomitant]
     Active Substance: ACETAMINOPHEN
     Indication: PAIN
     Dosage: HALF TABLET EVERY DAY
  4. AMBIEN [Concomitant]
     Active Substance: ZOLPIDEM TARTRATE
     Indication: SLEEP DISORDER
     Dosage: UNKNOWN
     Dates: start: 2006

REACTIONS (5)
  - Product odour abnormal [Unknown]
  - Product substitution issue [Unknown]
  - Product taste abnormal [Unknown]
  - Chest pain [Recovered/Resolved]
  - Drug ineffective [Unknown]

NARRATIVE: CASE EVENT DATE: 2019
